FAERS Safety Report 4824875-7 (Version None)
Quarter: 2005Q4

REPORT INFORMATION
  Report Type: 
  Country: None (occurrence: None)
  Receive Date: 20051109
  Receipt Date: 20051109
  Transmission Date: 20060501
  Serious: Yes (Other)
  Sender: FDA-Public Use
  Company Number: None

PATIENT
  Age: 52 Year
  Sex: Female
  Weight: 95.2554 kg

DRUGS (3)
  1. METFORMIN ER TABS 6065-  500MG [Suspect]
     Indication: DIABETES MELLITUS
     Dosage: TAKE 2 500MG TABLETS TWICE DAILY BY MOUTH
     Route: 048
     Dates: start: 20051001
  2. AMARYL [Concomitant]
  3. ACTOS [Concomitant]

REACTIONS (1)
  - DIABETES MELLITUS INADEQUATE CONTROL [None]
